FAERS Safety Report 14007328 (Version 2)
Quarter: 2017Q4

REPORT INFORMATION
  Report Type: Report from Study
  Country: AT (occurrence: AT)
  Receive Date: 20170925
  Receipt Date: 20171011
  Transmission Date: 20180321
  Serious: Yes (Hospitalization, Disabling)
  Sender: FDA-Public Use
  Company Number: AT-ROCHE-1995013

PATIENT
  Sex: Male

DRUGS (8)
  1. SIMVASTATIN. [Concomitant]
     Active Substance: SIMVASTATIN
  2. RITUXIMAB. [Suspect]
     Active Substance: RITUXIMAB
     Indication: PULMONARY FIBROSIS
  3. RITUXIMAB. [Suspect]
     Active Substance: RITUXIMAB
     Indication: RHEUMATOID ARTHRITIS
     Route: 065
     Dates: start: 201406
  4. APREDNISLON [Concomitant]
     Active Substance: PREDNISOLONE
  5. AEROMUC [Concomitant]
     Active Substance: ACETYLCYSTEINE
  6. CEREBOKAN [Concomitant]
     Active Substance: GINKGO
  7. ZURCAL [Concomitant]
     Active Substance: PANTOPRAZOLE SODIUM
  8. FOSTER [Concomitant]
     Active Substance: BECLOMETHASONE\FORMOTEROL
     Route: 065

REACTIONS (1)
  - Bladder transitional cell carcinoma [Recovered/Resolved with Sequelae]
